FAERS Safety Report 19079459 (Version 2)
Quarter: 2021Q2

REPORT INFORMATION
  Report Type: Spontaneous
  Country: GR (occurrence: GR)
  Receive Date: 20210331
  Receipt Date: 20210406
  Transmission Date: 20210717
  Serious: Yes (Other)
  Sender: FDA-Public Use
  Company Number: GR-AMGEN-GRCSP2021043240

PATIENT

DRUGS (2)
  1. ADALIMUMAB [Suspect]
     Active Substance: ADALIMUMAB
     Indication: UVEITIS
  2. ADALIMUMAB [Suspect]
     Active Substance: ADALIMUMAB
     Indication: JUVENILE IDIOPATHIC ARTHRITIS
     Dosage: UNK
     Route: 058

REACTIONS (8)
  - Therapeutic product effect decreased [Unknown]
  - Treatment noncompliance [Unknown]
  - Herpes zoster [Unknown]
  - Fibroadenoma of breast [Unknown]
  - Drug intolerance [Unknown]
  - Anorexia nervosa [Unknown]
  - Uveitis [Unknown]
  - Drug ineffective [Unknown]
